FAERS Safety Report 9732926 (Version 2)
Quarter: 2013Q4

REPORT INFORMATION
  Report Type: Spontaneous
  Country: JP (occurrence: JP)
  Receive Date: 20131205
  Receipt Date: 20131205
  Transmission Date: 20140711
  Serious: Yes (Hospitalization, Other)
  Sender: FDA-Public Use
  Company Number: JP-OTSUKA-JP-2013-15238

PATIENT
  Age: 84 Year
  Sex: Male

DRUGS (12)
  1. SAMSCA [Suspect]
     Indication: CARDIAC FAILURE CONGESTIVE
     Dosage: 7.5 MG MILLIGRAM(S), DAILY DOSE
     Route: 048
     Dates: start: 20131102, end: 20131106
  2. HANP [Suspect]
     Dosage: 0.0125 UG/KG/MIN, DAILY DOSE
     Route: 042
     Dates: start: 20131106, end: 20131106
  3. LASIX [Concomitant]
     Dosage: 20 MG MILLIGRAM(S), DAILY DOSE
     Route: 065
  4. ALOSITOL [Concomitant]
     Dosage: 100 MG MILLIGRAM(S), DAILY DOSE
     Route: 048
  5. BAYASPIRIN [Concomitant]
     Dosage: 100 MG MILLIGRAM(S), DAILY DOSE
     Route: 048
  6. UBRETID [Concomitant]
     Dosage: 5 MG MILLIGRAM(S), DAILY DOSE
     Route: 048
  7. LIPITOR [Concomitant]
     Dosage: 5 MG MILLIGRAM(S), DAILY DOSE
     Route: 048
  8. SELARA [Concomitant]
     Dosage: 50 MG MILLIGRAM(S), DAILY DOSE
     Route: 048
  9. SELBEX [Concomitant]
     Dosage: 100 MG MILLIGRAM(S), DAILY DOSE
     Route: 048
  10. HALCION [Concomitant]
     Dosage: 0.25 MG MILLIGRAM(S), DAILY DOSE
     Route: 048
  11. DIART [Concomitant]
     Dosage: 60 MG MILLIGRAM(S), DAILY DOSE
     Route: 048
  12. INOVAN [Concomitant]
     Dosage: 3 ML MILLILITRE(S), Q1HR
     Route: 042
     Dates: start: 20131104

REACTIONS (3)
  - Hepatic function abnormal [Recovering/Resolving]
  - Blood urea increased [Unknown]
  - Platelet count decreased [Unknown]
